FAERS Safety Report 14719039 (Version 1)
Quarter: 2018Q2

REPORT INFORMATION
  Report Type: Spontaneous
  Country: US (occurrence: US)
  Receive Date: 20180405
  Receipt Date: 20180405
  Transmission Date: 20180711
  Serious: No
  Sender: FDA-Public Use
  Company Number: US-ELI_LILLY_AND_COMPANY-US201804001448

PATIENT
  Sex: Male

DRUGS (3)
  1. HUMULIN R U-500 [Suspect]
     Active Substance: INSULIN HUMAN
     Dosage: 100 U, EACH EVENING
     Route: 058
     Dates: start: 20180328
  2. VICTOZA [Concomitant]
     Active Substance: LIRAGLUTIDE
     Indication: DIABETES MELLITUS
  3. HUMULIN R U-500 [Suspect]
     Active Substance: INSULIN HUMAN
     Indication: TYPE 2 DIABETES MELLITUS
     Dosage: 100 U, EACH MORNING
     Route: 058
     Dates: start: 20180328

REACTIONS (2)
  - Glycosylated haemoglobin increased [Unknown]
  - Blood glucose increased [Recovering/Resolving]
